FAERS Safety Report 9662117 (Version 2)
Quarter: 2013Q4

REPORT INFORMATION
  Report Type: Spontaneous
  Country: US (occurrence: US)
  Receive Date: 20131031
  Receipt Date: 20131031
  Transmission Date: 20140711
  Serious: No
  Sender: FDA-Public Use
  Company Number: US-PURDUE-USA-2010-0049373

PATIENT
  Age: 49 Year
  Sex: Female

DRUGS (1)
  1. OXYCONTIN (NDA 22-272) [Suspect]
     Indication: BACK INJURY
     Dosage: 40 MG, UNK
     Dates: start: 20100911

REACTIONS (3)
  - Drug withdrawal syndrome [Unknown]
  - Drug ineffective [Unknown]
  - Abdominal discomfort [Unknown]
